FAERS Safety Report 8836185 (Version 1)
Quarter: 2012Q4

REPORT INFORMATION
  Report Type: 
  Country: BR (occurrence: BR)
  Receive Date: 20121011
  Receipt Date: 20121011
  Transmission Date: 20130627
  Serious: Yes (Other)
  Sender: FDA-Public Use
  Company Number: BR-SANOFI-AVENTIS-2012SA073163

PATIENT
  Age: 57 Year
  Sex: Female
  Weight: 60 kg

DRUGS (13)
  1. APIDRA SOLOSTAR [Suspect]
     Indication: DIABETES
     Dosage: dose: according to glycemia
     Route: 058
     Dates: start: 2009
  2. SOLOSTAR [Suspect]
     Indication: DEVICE THERAPY
     Dates: start: 2009
  3. CODEX [Concomitant]
     Indication: PAIN
     Route: 048
  4. HUMALOG [Concomitant]
     Indication: DIABETES
  5. LOSARTAN [Concomitant]
     Indication: HYPERTENSION
     Dosage: strength: 50 mg/tablet
     Route: 048
  6. AMLODIPINE [Concomitant]
     Indication: HYPERTENSION
     Dosage: strength: 5 mg/tablet
     Route: 048
  7. APRESOLIN [Concomitant]
     Indication: HYPERTENSION
     Dosage: strength: 50 mg/tablet
     Route: 048
  8. ATENOLOL [Concomitant]
     Indication: HYPERTENSION
     Dosage: strength: 50 mg/tablet
     Route: 048
  9. FUROSEMIDE [Concomitant]
     Indication: DIURESIS
     Dosage: strength: 40 mg/ tablet
     Route: 048
  10. METFORMIN [Concomitant]
     Indication: DIABETES
     Dosage: strength: 500 mg/tablet
     Route: 048
  11. OMEPRAZOLE [Concomitant]
     Indication: GASTRIC DISORDER
     Route: 048
  12. RIVOTRIL [Concomitant]
     Indication: DISORDER SLEEP
     Dosage: strength: 2 mg/tablet
     Route: 048
  13. SIMVASTATIN [Concomitant]
     Indication: HYPERTENSION
     Dosage: strength: 20 mg/tablet
     Route: 048

REACTIONS (5)
  - Diabetes mellitus inadequate control [Not Recovered/Not Resolved]
  - Blood glucose increased [Not Recovered/Not Resolved]
  - Breast cancer [Not Recovered/Not Resolved]
  - Lymphadenopathy [Unknown]
  - Impaired healing [Unknown]
